FAERS Safety Report 17275605 (Version 2)
Quarter: 2020Q1

REPORT INFORMATION
  Report Type: Spontaneous
  Country: FR (occurrence: FR)
  Receive Date: 20200116
  Receipt Date: 20200123
  Transmission Date: 20200409
  Serious: Yes (Other)
  Sender: FDA-Public Use
  Company Number: ALC2019FR003490

PATIENT

DRUGS (5)
  1. TETRACAINE HYDROCHLORIDE. [Suspect]
     Active Substance: TETRACAINE HYDROCHLORIDE
     Indication: LOCAL ANAESTHESIA
     Route: 065
  2. AZYTER [Suspect]
     Active Substance: AZITHROMYCIN ANHYDROUS
     Indication: AGE-RELATED MACULAR DEGENERATION
     Dosage: UNK UNK, TID
     Route: 065
  3. POVIDONE-IODINE. [Concomitant]
     Active Substance: POVIDONE-IODINE
     Dosage: UNK
     Route: 065
  4. EYLEA [Suspect]
     Active Substance: AFLIBERCEPT
     Indication: AGE-RELATED MACULAR DEGENERATION
     Dosage: UNK
     Route: 031
  5. POVIDONE-IODINE. [Concomitant]
     Active Substance: POVIDONE-IODINE
     Indication: AGE-RELATED MACULAR DEGENERATION
     Route: 065

REACTIONS (3)
  - Dermatitis [Unknown]
  - Conjunctivitis [Unknown]
  - Eczema [Unknown]
